FAERS Safety Report 4938672-5 (Version None)
Quarter: 2006Q1

REPORT INFORMATION
  Report Type: 
  Country: None (occurrence: None)
  Receive Date: 20060127
  Receipt Date: 20051025
  Transmission Date: 20060701
  Serious: Yes (Other)
  Sender: FDA-Public Use
  Company Number: 2005147710

PATIENT
  Age: 80 Year
  Sex: Male
  Weight: 111.1313 kg

DRUGS (8)
  1. LYRICA [Suspect]
     Indication: NEUROPATHY PERIPHERAL
     Dosage: 75 MG (75 MG,1 IN1 D)
     Dates: start: 20051015
  2. NEURONTIN [Concomitant]
  3. INSULIN (INSULIN) [Concomitant]
  4. WARFARIN SODIUM [Concomitant]
  5. ANTIHYPERTENSIVES (ANTIHYPERTENSIVES) [Concomitant]
  6. TRAMADOL HCL [Concomitant]
  7. LIPITOR [Concomitant]
  8. DIGOXIN [Concomitant]

REACTIONS (2)
  - SOMNOLENCE [None]
  - VITREOUS FLOATERS [None]
